FAERS Safety Report 5896148-5 (Version None)
Quarter: 2008Q3

REPORT INFORMATION
  Report Type: 
  Country: None (occurrence: None)
  Receive Date: 20080924
  Receipt Date: 20080115
  Transmission Date: 20090109
  Serious: Yes (Hospitalization)
  Sender: FDA-Public Use
  Company Number: US-ASTRAZENECA-2007UW13589

PATIENT
  Age: 14 Year
  Sex: Female
  Weight: 131.5 kg

DRUGS (8)
  1. SEROQUEL [Suspect]
     Indication: BIPOLAR DISORDER
     Route: 048
     Dates: start: 20050101, end: 20050101
  2. SEROQUEL [Suspect]
     Indication: DEPRESSION
     Route: 048
     Dates: start: 20050101, end: 20050101
  3. SEROQUEL [Suspect]
     Indication: ANXIETY
     Route: 048
     Dates: start: 20050101, end: 20050101
  4. ZYPREXA [Concomitant]
  5. PROZAC [Concomitant]
  6. ORTH-TRICYCLEN 28 [Concomitant]
     Indication: MENSTRUATION IRREGULAR
  7. ANTIBIOTIC [Concomitant]
     Indication: INFECTION
  8. TENORMIN [Concomitant]

REACTIONS (4)
  - ABDOMINAL PAIN [None]
  - DIABETES MELLITUS [None]
  - UPPER RESPIRATORY TRACT INFECTION [None]
  - URINARY TRACT INFECTION [None]
